FAERS Safety Report 25984718 (Version 1)
Quarter: 2025Q4

REPORT INFORMATION
  Report Type: Spontaneous
  Country: GB (occurrence: GB)
  Receive Date: 20251031
  Receipt Date: 20251031
  Transmission Date: 20260118
  Serious: Yes (Other)
  Sender: PFIZER
  Company Number: GB-PFIZER INC-202500213209

PATIENT
  Sex: Female

DRUGS (1)
  1. PROSTIN E2 [Suspect]
     Active Substance: DINOPROSTONE
     Dosage: UNK

REACTIONS (2)
  - Uterine haemorrhage [Unknown]
  - Off label use [Unknown]
